FAERS Safety Report 10764071 (Version 1)
Quarter: 2015Q1

REPORT INFORMATION
  Report Type: Other
  Country: DE (occurrence: US)
  Receive Date: 20150204
  Receipt Date: 20150204
  Transmission Date: 20150721
  Serious: Yes (Other)
  Sender: FDA-Public Use
  Company Number: DE-ACTELION-A-US2015-112203

PATIENT
  Age: 29 Year
  Sex: Female

DRUGS (10)
  1. VASOPRESSIN. [Concomitant]
     Active Substance: VASOPRESSIN
  2. NITRIC OXIDE. [Concomitant]
     Active Substance: NITRIC OXIDE
  3. OXYTOCIN. [Concomitant]
     Active Substance: OXYTOCIN
  4. HEPARIN [Suspect]
     Active Substance: HEPARIN SODIUM
     Indication: ANTICOAGULATION DRUG LEVEL
     Dosage: UNK
     Route: 065
  5. FUROSEMIDE. [Concomitant]
     Active Substance: FUROSEMIDE
  6. VENTAVIS [Suspect]
     Active Substance: ILOPROST
     Indication: EISENMENGER^S SYNDROME
     Dosage: UNK
     Route: 055
  7. PHENYLEPHRINE HYDROCHLORIDE. [Suspect]
     Active Substance: PHENYLEPHRINE HYDROCHLORIDE
     Indication: VASOPRESSIVE THERAPY
     Dosage: UNK
     Route: 065
  8. LIDOCAINE. [Concomitant]
     Active Substance: LIDOCAINE
  9. OXYGEN. [Concomitant]
     Active Substance: OXYGEN
  10. MILRINONE [Concomitant]
     Active Substance: MILRINONE

REACTIONS (10)
  - Caesarean section [Unknown]
  - Respiratory failure [Unknown]
  - Disseminated intravascular coagulation [Unknown]
  - Product use issue [Unknown]
  - Cardiogenic shock [Unknown]
  - Exposure during pregnancy [Unknown]
  - Peritoneal haematoma [Unknown]
  - Acute kidney injury [Unknown]
  - Labelled drug-drug interaction medication error [Unknown]
  - Procedural haemorrhage [Unknown]
